FAERS Safety Report 5558001-6 (Version None)
Quarter: 2007Q4

REPORT INFORMATION
  Report Type: 
  Country: None (occurrence: None)
  Receive Date: 20071214
  Receipt Date: 20071126
  Transmission Date: 20080405
  Serious: Yes (Life-Threatening, Hospitalization, Disabling, Other)
  Sender: FDA-Public Use
  Company Number: GB-RANBAXY-2007RR-11609

PATIENT

DRUGS (5)
  1. AMITRIPTYLINE HCL [Suspect]
     Indication: DEPRESSION
     Dosage: UNK
     Route: 048
     Dates: end: 20020917
  2. IBUPROFEN [Suspect]
  3. ACETAMINOPHEN [Suspect]
     Route: 065
  4. AMIODARONE HCL [Concomitant]
     Route: 048
  5. PHENYTOIN [Concomitant]
     Route: 065

REACTIONS (12)
  - ACUTE RESPIRATORY DISTRESS SYNDROME [None]
  - CARDIAC ARREST [None]
  - ELECTROMECHANICAL DISSOCIATION [None]
  - GRAND MAL CONVULSION [None]
  - HAEMOPHILUS INFECTION [None]
  - INTENTIONAL OVERDOSE [None]
  - LOSS OF CONSCIOUSNESS [None]
  - PNEUMOTHORAX [None]
  - PYREXIA [None]
  - STREPTOCOCCAL INFECTION [None]
  - TACHYCARDIA [None]
  - UNRESPONSIVE TO STIMULI [None]
